FAERS Safety Report 20104043 (Version 1)
Quarter: 2021Q4

REPORT INFORMATION
  Report Type: Spontaneous
  Country: US (occurrence: US)
  Receive Date: 20211123
  Receipt Date: 20211123
  Transmission Date: 20220303
  Serious: No
  Sender: FDA-Public Use
  Company Number: US-AMNEAL PHARMACEUTICALS-2021-AMRX-03497

PATIENT
  Sex: Female

DRUGS (1)
  1. ISOTRETINOIN [Suspect]
     Active Substance: ISOTRETINOIN
     Indication: Product used for unknown indication
     Dosage: UNK
     Route: 065
     Dates: start: 20210303, end: 20210627

REACTIONS (4)
  - Pharyngitis streptococcal [Unknown]
  - Mental disorder [Unknown]
  - Acne [Unknown]
  - Disease recurrence [Unknown]

NARRATIVE: CASE EVENT DATE: 20210101
